FAERS Safety Report 7510448-4 (Version None)
Quarter: 2011Q2

REPORT INFORMATION
  Report Type: 
  Country: None (occurrence: None)
  Receive Date: 20110527
  Receipt Date: 20110518
  Transmission Date: 20111010
  Serious: Yes (Life-Threatening, Hospitalization, Disabling)
  Sender: FDA-Public Use
  Company Number: FR-GENENTECH-244892

PATIENT
  Sex: Female

DRUGS (14)
  1. ZOLPIDEM [Concomitant]
     Indication: PRODUCT USED FOR UNKNOWN INDICATION
  2. NEULASTA [Concomitant]
     Indication: PRODUCT USED FOR UNKNOWN INDICATION
  3. RITUXAN [Suspect]
     Indication: B-CELL LYMPHOMA
     Dosage: 375 MG/M2, UNK
     Route: 042
     Dates: start: 20060412, end: 20061123
  4. NEUPOGEN [Suspect]
     Dosage: UNK, UNK
     Dates: start: 20061201, end: 20061206
  5. AZACITIDINE [Suspect]
     Indication: PRODUCT USED FOR UNKNOWN INDICATION
  6. FLUDARA [Suspect]
     Indication: B-CELL LYMPHOMA
     Dosage: 25 MG/M2, UNK
     Route: 042
     Dates: start: 20060823, end: 20061123
  7. CYCLOPHOSPHAMIDE [Suspect]
     Indication: B-CELL LYMPHOMA
     Dosage: 700 MG/M2, UNK
     Route: 042
     Dates: start: 20060412, end: 20061123
  8. NEUPOGEN [Suspect]
     Indication: NEUTROPENIA
     Dosage: 30 MIU, UNK
     Route: 042
     Dates: start: 20061023
  9. ANTI-FUNGAL [Suspect]
     Indication: PRODUCT USED FOR UNKNOWN INDICATION
  10. VALACYCLOVIR HYDROCHLORIDE [Concomitant]
     Indication: PRODUCT USED FOR UNKNOWN INDICATION
  11. XANAX [Concomitant]
     Indication: PRODUCT USED FOR UNKNOWN INDICATION
  12. NEUPOGEN [Suspect]
     Dosage: UNK, UNK
     Dates: start: 20061225, end: 20061227
  13. ANTIVIRAL AGENTS [Suspect]
     Indication: PRODUCT USED FOR UNKNOWN INDICATION
  14. BACTRIM [Concomitant]
     Indication: PRODUCT USED FOR UNKNOWN INDICATION

REACTIONS (2)
  - LUNG DISORDER [None]
  - PULMONARY FIBROSIS [None]
